FAERS Safety Report 7591044-X (Version None)
Quarter: 2011Q3

REPORT INFORMATION
  Report Type: 
  Country: None (occurrence: None)
  Receive Date: 20110705
  Receipt Date: 20110630
  Transmission Date: 20111222
  Serious: Yes (Other)
  Sender: FDA-Public Use
  Company Number: CA-PFIZER INC-2011040700

PATIENT
  Age: 71 Year
  Sex: Male

DRUGS (13)
  1. CLONAZEPAM [Concomitant]
     Dosage: 0.5 MG, 2X/DAY
  2. LYRICA [Suspect]
     Indication: BACK PAIN
     Dosage: 50MG TO 100MG 2X/DAY
     Route: 048
     Dates: start: 20110222
  3. ASPIRIN [Concomitant]
     Indication: ATHEROSCLEROSIS PROPHYLAXIS
     Dosage: 80 MG, 1X/DAY
     Route: 048
     Dates: start: 20080127
  4. ATORVASTATIN [Concomitant]
     Indication: DYSLIPIDAEMIA
     Dosage: 40 MG, 1X/DAY AT BEDTIME
     Route: 048
     Dates: start: 20061101
  5. ATIVAN [Concomitant]
     Dosage: 1 MG, 3X/DAY
  6. NOVORAPID [Concomitant]
     Indication: BLOOD GLUCOSE ABNORMAL
     Dosage: 8 IU, 3X/DAY
  7. NOVOLIN N [Concomitant]
     Indication: BLOOD GLUCOSE ABNORMAL
     Dosage: 20 IU, 1X/DAY
  8. SALBUTAMOL [Concomitant]
     Dosage: 2 INHALATIONS, AS NEEDED
     Route: 055
  9. ALFUZOSIN HCL [Concomitant]
     Indication: BENIGN PROSTATIC HYPERPLASIA
     Dosage: 10 MG, 1X/DAY
     Route: 048
     Dates: start: 20090401
  10. RAMIPRIL [Concomitant]
     Indication: HYPERTENSION
     Dosage: 10 MG, 1X/DAY IN THE MORNING
     Dates: start: 20061101
  11. DILTIAZEM [Concomitant]
     Dosage: 300 MG, 1X/DAY
     Dates: start: 20100121
  12. BUSPIRONE [Concomitant]
     Dosage: 10 MG, 1X/DAY
     Route: 048
     Dates: start: 20081127
  13. HYDROMORPHONE HCL [Concomitant]
     Dosage: 3 MG, 2X/DAY (EVERY 12 HOURS)
     Dates: start: 20100916

REACTIONS (1)
  - HERPES ZOSTER [None]
